FAERS Safety Report 10276122 (Version 2)
Quarter: 2014Q3

REPORT INFORMATION
  Report Type: Spontaneous
  Country: US (occurrence: None)
  Receive Date: 20140701
  Receipt Date: 20140804
  Transmission Date: 20150326
  Serious: Yes (Other)
  Sender: FDA-Public Use
  Company Number: 2014-US-007454

PATIENT
  Age: 72 Year
  Sex: Female

DRUGS (1)
  1. XYREM [Suspect]
     Active Substance: SODIUM OXYBATE
     Indication: INSOMNIA
     Route: 048
     Dates: start: 201201, end: 2012

REACTIONS (4)
  - Arthritis [None]
  - Shoulder operation [None]
  - Procedural pain [None]
  - Off label use [None]

NARRATIVE: CASE EVENT DATE: 20140527
